FAERS Safety Report 23677515 (Version 1)
Quarter: 2024Q1

REPORT INFORMATION
  Report Type: Report from Study
  Country: CA (occurrence: CA)
  Receive Date: 20240327
  Receipt Date: 20240327
  Transmission Date: 20240410
  Serious: Yes (Other)
  Sender: FDA-Public Use
  Company Number: CA-SANDOZ-SDZ2024CA031448

PATIENT
  Sex: Male

DRUGS (1)
  1. PIRFENIDONE [Suspect]
     Active Substance: PIRFENIDONE
     Indication: Idiopathic pulmonary fibrosis
     Dosage: UNK
     Route: 065

REACTIONS (8)
  - Pulmonary hypertension [Unknown]
  - Interstitial lung disease [Unknown]
  - Cardiac failure congestive [Unknown]
  - Forced vital capacity abnormal [Unknown]
  - Respiratory gas exchange disorder [Unknown]
  - Anaemia [Unknown]
  - Emphysema [Unknown]
  - Lung consolidation [Unknown]
